FAERS Safety Report 6475634-3 (Version None)
Quarter: 2009Q4

REPORT INFORMATION
  Report Type: 
  Country: None (occurrence: None)
  Receive Date: 20091204
  Receipt Date: 20091129
  Transmission Date: 20100525
  Serious: Yes (Death)
  Sender: FDA-Public Use
  Company Number: US-PFIZER INC-2009303475

PATIENT
  Sex: Male
  Weight: 98.866 kg

DRUGS (6)
  1. PREDNISONE [Suspect]
     Indication: PROSTATE CANCER
     Dosage: 5 MG, 2X/DAY
     Route: 048
     Dates: start: 20091022, end: 20091126
  2. BLINDED *NO SUBJECT DRUG [Suspect]
     Indication: PROSTATE CANCER
     Dosage: 37.5 MG, 1X/DAY
     Route: 048
     Dates: start: 20091022, end: 20091126
  3. BLINDED *PLACEBO [Suspect]
     Indication: PROSTATE CANCER
     Dosage: 37.5 MG, 1X/DAY
     Route: 048
     Dates: start: 20091022, end: 20091126
  4. BLINDED SUNITINIB MALATE [Suspect]
     Indication: PROSTATE CANCER
     Dosage: 37.5 MG, 1X/DAY
     Route: 048
     Dates: start: 20091022, end: 20091126
  5. COREG [Concomitant]
     Indication: HYPERTENSION
     Dosage: 20 MG, 1X/DAY
     Route: 048
     Dates: start: 20081001, end: 20091126
  6. MORPHINE SULFATE [Concomitant]
     Indication: CANCER PAIN
     Dosage: 30 MG, EVERY 3-4 HOURS AS NEEDED
     Route: 048
     Dates: start: 20090201, end: 20091126

REACTIONS (3)
  - HYPOTENSION [None]
  - MOUTH HAEMORRHAGE [None]
  - SEPSIS [None]
